FAERS Safety Report 15628620 (Version 2)
Quarter: 2018Q4

REPORT INFORMATION
  Report Type: Spontaneous
  Country: NO (occurrence: NO)
  Receive Date: 20181116
  Receipt Date: 20181121
  Transmission Date: 20190205
  Serious: Yes (Other)
  Sender: FDA-Public Use
  Company Number: NO-TEVA-2018-NO-975650

PATIENT
  Age: 62 Year
  Sex: Female

DRUGS (9)
  1. AMLODIPINE [Suspect]
     Active Substance: AMLODIPINE BESYLATE
     Indication: HYPERTENSION
     Dosage: 5 MILLIGRAM DAILY; RECHALLENGE FROM 11/09/2018 TO 28/09/2018.
     Route: 048
     Dates: start: 20171116, end: 20180104
  2. MAXALT [Concomitant]
     Active Substance: RIZATRIPTAN BENZOATE
     Dosage: AS NEEDED
     Route: 048
  3. AMLODIPINE [Suspect]
     Active Substance: AMLODIPINE BESYLATE
     Indication: HYPERTENSION
     Dosage: 5 MILLIGRAM DAILY; RECHALLENGE
     Route: 065
     Dates: start: 20180911, end: 20180928
  4. CIPRALEX [Concomitant]
     Active Substance: ESCITALOPRAM OXALATE
     Indication: ANXIETY
     Dosage: 10 MILLIGRAM DAILY;
     Route: 048
     Dates: start: 201708, end: 201803
  5. LOSARTAN. [Suspect]
     Active Substance: LOSARTAN
     Indication: HYPERTENSION
     Dosage: 50 MILLIGRAM DAILY;
     Route: 048
     Dates: start: 20170922, end: 20171116
  6. PANTOPRAZOL [Concomitant]
     Active Substance: PANTOPRAZOLE SODIUM
     Indication: DYSPEPSIA
     Dosage: 20 MILLIGRAM DAILY; AS NEEDED
     Dates: start: 20180201, end: 20180430
  7. BENZATHINE PHENOXYMETHYL PENICILLIN [Concomitant]
     Active Substance: PENICILLIN V BENZATHINE
     Indication: RESPIRATORY TRACT INFECTION
     Dosage: 1 GRAM DAILY;
     Route: 048
     Dates: start: 20171025, end: 20171030
  8. HYPROSAN [Concomitant]
     Route: 047
  9. CIPRALEX [Concomitant]
     Active Substance: ESCITALOPRAM OXALATE
     Indication: DEPRESSION

REACTIONS (4)
  - Malaise [Recovered/Resolved]
  - Dizziness [Recovered/Resolved]
  - Cough [Recovered/Resolved]
  - Pancreatitis chronic [Recovered/Resolved]

NARRATIVE: CASE EVENT DATE: 20171110
